FAERS Safety Report 7206462-9 (Version None)
Quarter: 2010Q4

REPORT INFORMATION
  Report Type: 
  Country: None (occurrence: None)
  Receive Date: 20101229
  Receipt Date: 20101229
  Transmission Date: 20110411
  Serious: Yes (Hospitalization, Disabling)
  Sender: FDA-Public Use
  Company Number: None

PATIENT
  Age: 39 Year
  Sex: Female
  Weight: 72.5755 kg

DRUGS (1)
  1. VIVITROL [Suspect]
     Indication: ALCOHOLISM
     Dosage: 380 MG/VIAL Q MONTH IM
     Route: 030
     Dates: start: 20101109, end: 20101109

REACTIONS (5)
  - INJECTION SITE NODULE [None]
  - INJECTION SITE PAIN [None]
  - NECROSIS [None]
  - NO THERAPEUTIC RESPONSE [None]
  - OPEN WOUND [None]
